FAERS Safety Report 5146944-7 (Version None)
Quarter: 2006Q4

REPORT INFORMATION
  Report Type: 
  Country: None (occurrence: None)
  Receive Date: 20060914
  Receipt Date: 20060621
  Transmission Date: 20070319
  Serious: Yes (Other)
  Sender: FDA-Public Use
  Company Number: PHEH2006US08112

PATIENT
  Age: 65 Year
  Sex: Male
  Weight: 109.3 kg

DRUGS (7)
  1. DIOVAN [Suspect]
     Indication: HYPERTENSION
     Dosage: 80 MG, QD, UNK
     Dates: start: 20060201
  2. BIDIL(HYDRALAZINE HYDROCHLORIDE, ISOSORBIDE DINITRATE) [Suspect]
     Indication: HYPERTENSION
     Dosage: UNK, BID, UNK
     Dates: start: 20060421, end: 20060611
  3. LASIX [Concomitant]
  4. WARFARIN SODIUM [Concomitant]
  5. AMIODARONE HCL [Concomitant]
  6. FUROSEMIDE [Concomitant]
  7. COREG [Concomitant]

REACTIONS (4)
  - DIZZINESS [None]
  - HEAD INJURY [None]
  - HYPOTENSION [None]
  - SYNCOPE [None]
